FAERS Safety Report 18596109 (Version 3)
Quarter: 2021Q1

REPORT INFORMATION
  Report Type: Report from Study
  Country: DE (occurrence: DE)
  Receive Date: 20201209
  Receipt Date: 20210121
  Transmission Date: 20210419
  Serious: Yes (Other)
  Sender: FDA-Public Use
  Company Number: DE-MYLANLABS-2020M1099630

PATIENT
  Age: 52 Year
  Sex: Female
  Weight: 62 kg

DRUGS (12)
  1. OCREVUS [Suspect]
     Active Substance: OCRELIZUMAB
     Dosage: 300 MILLIGRAM
     Route: 042
     Dates: start: 20180523
  2. OCREVUS [Suspect]
     Active Substance: OCRELIZUMAB
     Indication: RELAPSING-REMITTING MULTIPLE SCLEROSIS
     Dosage: 600 GRAM
     Route: 042
     Dates: start: 20201028
  3. CORTISONE [Suspect]
     Active Substance: CORTISONE
     Indication: PRODUCT USED FOR UNKNOWN INDICATION
     Dosage: ALTERNATIVE TO VOLON A
     Route: 065
     Dates: start: 20200810, end: 20200813
  4. VOLON A                            /00031902/ [Concomitant]
     Active Substance: TRIAMCINOLONE ACETONIDE
     Dosage: 100 MILLIGRAM, Q3MONTHS
     Dates: start: 20200409
  5. CANNABIS SATIVA FLOWER [Concomitant]
     Dosage: SEVERAL TIMES PER DAY AND IN THE NIGHT
  6. DOMPERIDONE [Concomitant]
     Active Substance: DOMPERIDONE
     Dosage: UNK
  7. IBUPROFEN. [Concomitant]
     Active Substance: IBUPROFEN
     Dosage: UNK
  8. DEKRISTOL [Concomitant]
     Active Substance: CHOLECALCIFEROL
     Dosage: 20000 INTERNATIONAL UNIT, QW
  9. VOLON A                            /00031902/ [Concomitant]
     Active Substance: TRIAMCINOLONE ACETONIDE
     Dosage: UNK, Q3MONTHS (INTO SPINAL FLUID)
  10. PANTOPRAZOLE [Suspect]
     Active Substance: PANTOPRAZOLE
     Indication: PRODUCT USED FOR UNKNOWN INDICATION
     Dosage: 40 MILLIGRAM, PRN (AS REQUIRED)
     Route: 065
  11. NOVALGIN (METAMIZOLE SODIUM) [Concomitant]
     Active Substance: METAMIZOLE SODIUM
     Dosage: UNK
  12. SALBUTAMOL [Concomitant]
     Active Substance: ALBUTEROL
     Dosage: UNK

REACTIONS (21)
  - Blood cholesterol increased [Recovering/Resolving]
  - Body fat disorder [Not Recovered/Not Resolved]
  - Cushing^s syndrome [Not Recovered/Not Resolved]
  - Dizziness [Recovered/Resolved]
  - Fluid retention [Not Recovered/Not Resolved]
  - Arthralgia [Not Recovered/Not Resolved]
  - Alopecia [Recovered/Resolved]
  - Paraesthesia [Recovered/Resolved]
  - Bone pain [Not Recovered/Not Resolved]
  - Urinary tract infection bacterial [Recovered/Resolved]
  - Asthenia [Recovered/Resolved]
  - Gastritis erosive [Recovered/Resolved]
  - Dry skin [Not Recovered/Not Resolved]
  - Muscle spasticity [Not Recovered/Not Resolved]
  - Irritability [Not Recovered/Not Resolved]
  - Rash [Recovered/Resolved]
  - Cataract [Not Recovered/Not Resolved]
  - Insomnia [Recovered/Resolved]
  - Weight increased [Not Recovered/Not Resolved]
  - Periorbital swelling [Not Recovered/Not Resolved]
  - Muscular weakness [Recovered/Resolved]

NARRATIVE: CASE EVENT DATE: 20190430
